FAERS Safety Report 7946492-2 (Version None)
Quarter: 2011Q4

REPORT INFORMATION
  Report Type: 
  Country: None (occurrence: None)
  Receive Date: 20111129
  Receipt Date: 20111117
  Transmission Date: 20120403
  Serious: Yes (Hospitalization)
  Sender: FDA-Public Use
  Company Number: US-ELI_LILLY_AND_COMPANY-US201111007117

PATIENT
  Sex: Female

DRUGS (11)
  1. ALPRAZOLAM [Concomitant]
  2. FUROSEMIDE [Concomitant]
  3. CLAVULANATE POTASSIUM [Concomitant]
  4. DIGOXIN [Concomitant]
  5. METOPROLOL TARTRATE [Concomitant]
  6. ASPIRIN [Concomitant]
  7. GABAPENTIN [Concomitant]
  8. FORTEO [Suspect]
     Indication: OSTEOPOROSIS
     Dosage: 20 UG, QD
     Dates: start: 20110801
  9. LOSARTAN POTASSIUM [Concomitant]
  10. SINGULAIR [Concomitant]
  11. PANTOPRAZOLE [Concomitant]

REACTIONS (1)
  - CARDIAC FAILURE [None]
